FAERS Safety Report 15353271 (Version 1)
Quarter: 2018Q3

REPORT INFORMATION
  Report Type: Spontaneous
  Country: FR (occurrence: FR)
  Receive Date: 20180905
  Receipt Date: 20180905
  Transmission Date: 20181010
  Serious: Yes (Life-Threatening, Other)
  Sender: FDA-Public Use
  Company Number: FR-SEATTLE GENETICS-2018SGN02191

PATIENT
  Age: 86 Year
  Sex: Male
  Weight: 70 kg

DRUGS (7)
  1. OFLOXACIN. [Concomitant]
     Active Substance: OFLOXACIN
     Dosage: UNK
  2. BENDAMUSTINE HYDROCHLORIDE. [Suspect]
     Active Substance: BENDAMUSTINE HYDROCHLORIDE
     Indication: HODGKIN^S DISEASE
     Dosage: 1.8 MG/M2, UNK
     Route: 042
     Dates: start: 20180809
  3. VALACICLOVIR [Concomitant]
     Active Substance: VALACYCLOVIR HYDROCHLORIDE
     Dosage: UNK
  4. LENOGRASTIM [Concomitant]
     Active Substance: LENOGRASTIM
     Dosage: UNK
  5. PIPERACILLIN AND TAZOBACTAM [Concomitant]
     Active Substance: PIPERACILLIN SODIUM\TAZOBACTAM SODIUM
     Dosage: UNK
  6. ADCETRIS [Suspect]
     Active Substance: BRENTUXIMAB VEDOTIN
     Indication: HODGKIN^S DISEASE
     Dosage: 90 MG/M2, UNK
     Route: 042
     Dates: start: 20180809
  7. NEBIVOLOL. [Concomitant]
     Active Substance: NEBIVOLOL
     Dosage: UNK

REACTIONS (2)
  - Disseminated intravascular coagulation [Recovering/Resolving]
  - Anaphylactic shock [Recovering/Resolving]

NARRATIVE: CASE EVENT DATE: 20180809
